FAERS Safety Report 4958042-3 (Version None)
Quarter: 2006Q1

REPORT INFORMATION
  Report Type: 
  Country: None (occurrence: None)
  Receive Date: 20060127
  Receipt Date: 20050726
  Transmission Date: 20060701
  Serious: Yes (Hospitalization, Other)
  Sender: FDA-Public Use
  Company Number: 05-07-1305

PATIENT
  Age: 49 Year
  Sex: Male
  Weight: 90.7194 kg

DRUGS (1)
  1. CLOZAPINE [Suspect]
     Dosage: 600MG QD, ORAL
     Route: 048
     Dates: start: 20020101

REACTIONS (1)
  - PNEUMONIA [None]
